FAERS Safety Report 23946947 (Version 1)
Quarter: 2024Q2

REPORT INFORMATION
  Report Type: Spontaneous
  Country: JP (occurrence: JP)
  Receive Date: 20240606
  Receipt Date: 20240606
  Transmission Date: 20240716
  Serious: Yes (Other)
  Sender: FDA-Public Use
  Company Number: JP-Merck Healthcare KGaA-2024029999

PATIENT
  Sex: Female
  Weight: 80 kg

DRUGS (2)
  1. METGLUCO [Suspect]
     Active Substance: METFORMIN HYDROCHLORIDE
     Indication: Diabetes mellitus
     Route: 048
  2. PONSTEL [Suspect]
     Active Substance: MEFENAMIC ACID
     Indication: Pain
     Route: 048

REACTIONS (6)
  - Limb mass [Unknown]
  - Arthralgia [Unknown]
  - Meniscopathy [Unknown]
  - Ligament disorder [Unknown]
  - Blood glucose increased [Recovering/Resolving]
  - Liver function test increased [Recovered/Resolved]
